FAERS Safety Report 4954769-8 (Version None)
Quarter: 2006Q1

REPORT INFORMATION
  Report Type: 
  Country: None (occurrence: None)
  Receive Date: 20060322
  Receipt Date: 20060309
  Transmission Date: 20060701
  Serious: Yes (Death, Hospitalization, Other)
  Sender: FDA-Public Use
  Company Number: JP200603003157

PATIENT
  Age: 68 Year
  Sex: Male

DRUGS (17)
  1. GEMZAR [Suspect]
     Indication: NON-SMALL CELL LUNG CANCER
     Dosage: INTRAVENOUS
     Route: 042
     Dates: start: 20050927, end: 20051004
  2. GEMZAR [Suspect]
     Indication: NON-SMALL CELL LUNG CANCER
     Dosage: INTRAVENOUS
     Route: 042
     Dates: start: 20051025
  3. VINORELBINE DITARTRATE (VINORELBINE DITRATRATE) [Concomitant]
  4. TOPOTECIN (IRINOTECAN HYDROCHLORIDE) [Concomitant]
  5. UNIPHYL (THEOPHYLLINE) TABLET [Concomitant]
  6. AMLODIN (AMLODIPINE BESILATE) TABLET [Concomitant]
  7. SILECE (FLUNITRAZEPAM) TABLET [Concomitant]
  8. SIGMART (NICORANDIL) TABLET [Concomitant]
  9. MAGNESIUM OXIDE (MAGNESIUM OXIDE) [Concomitant]
  10. TAKEPRON (LANSOPRAZOLE) TABLET [Concomitant]
  11. BAKTAR (SULFAMETHOXAZOLE, TRIMETHOPRIN) TABLET [Concomitant]
  12. BUFFERIN (ACETYLSALICYLIC ACID, ALUMINIUM  GLYCINATE) TABLET [Concomitant]
  13. PANTETHINE (PANTETHINE) POWDER [Concomitant]
  14. MOBIC [Concomitant]
  15. CODEINE PHOSPHATE (CODEINE PHOSPHATE) [Concomitant]
  16. NITROGLYCERIN [Concomitant]
  17. MOHRUS (KETOPROFEN) [Concomitant]

REACTIONS (3)
  - FEBRILE NEUTROPENIA [None]
  - MALIGNANT NEOPLASM PROGRESSION [None]
  - RADIATION PNEUMONITIS [None]
